FAERS Safety Report 6435215-4 (Version None)
Quarter: 2009Q4

REPORT INFORMATION
  Report Type: 
  Country: None (occurrence: None)
  Receive Date: 20091110
  Receipt Date: 20091028
  Transmission Date: 20100525
  Serious: Yes (Other)
  Sender: FDA-Public Use
  Company Number: CA-ELI_LILLY_AND_COMPANY-CA200911001607

PATIENT
  Age: 12 Year
  Sex: Male

DRUGS (2)
  1. STRATTERA [Suspect]
     Dosage: 40 MG, DAILY (1/D)
     Route: 065
  2. STRATTERA [Suspect]
     Dosage: 25 MG, DAILY (1/D)
     Route: 065

REACTIONS (2)
  - INTENTIONAL SELF-INJURY [None]
  - SUICIDAL IDEATION [None]
